FAERS Safety Report 13711330 (Version 3)
Quarter: 2017Q3

REPORT INFORMATION
  Report Type: Spontaneous
  Country: PE (occurrence: PE)
  Receive Date: 20170703
  Receipt Date: 20170705
  Transmission Date: 20171127
  Serious: Yes (Death, Hospitalization)
  Sender: FDA-Public Use
  Company Number: PE-SA-2017SA116929

PATIENT
  Age: 15 Year
  Sex: Female
  Weight: 28 kg

DRUGS (2)
  1. CEREZYME [Suspect]
     Active Substance: IMIGLUCERASE
     Indication: GAUCHER^S DISEASE
     Dosage: DOSE:60 UNIT(S)/KILOGRAM BODYWEIGHT
     Route: 041
     Dates: start: 20150520, end: 20160627
  2. CEREZYME [Suspect]
     Active Substance: IMIGLUCERASE
     Indication: GAUCHER^S DISEASE
     Dosage: DOSE:60 UNIT(S)/KILOGRAM BODYWEIGHT
     Route: 041
     Dates: start: 20170515, end: 201706

REACTIONS (5)
  - Tachycardia [Unknown]
  - Colitis ulcerative [Fatal]
  - Haematemesis [Fatal]
  - Pyrexia [Unknown]
  - Gastrointestinal haemorrhage [Fatal]

NARRATIVE: CASE EVENT DATE: 20170624
